FAERS Safety Report 16808519 (Version 1)
Quarter: 2019Q3

REPORT INFORMATION
  Report Type: Spontaneous
  Country: US (occurrence: US)
  Receive Date: 20190724
  Receipt Date: 20190724
  Transmission Date: 20191005
  Serious: No
  Sender: FDA-Public Use
  Company Number: None

PATIENT
  Age: 65 Year
  Sex: Female

DRUGS (1)
  1. NANO TEARS XP CLEAR EMOLLIENT LUBRICANT GEL DROPS [Suspect]
     Active Substance: POLYETHYLENE GLYCOL 400\PROPYLENE GLYCOL
     Indication: DRY EYE
     Route: 047
     Dates: start: 20190626, end: 20190703

REACTIONS (2)
  - Recalled product [None]
  - Eye burns [None]

NARRATIVE: CASE EVENT DATE: 20190628
